FAERS Safety Report 22537647 (Version 1)
Quarter: 2023Q2

REPORT INFORMATION
  Report Type: Spontaneous
  Country: US (occurrence: None)
  Receive Date: 20230607
  Receipt Date: 20230607
  Transmission Date: 20230721
  Serious: Yes (Hospitalization)
  Sender: FDA-Public Use
  Company Number: None

PATIENT
  Sex: Female

DRUGS (12)
  1. IBRANCE [Suspect]
     Active Substance: PALBOCICLIB
     Indication: Breast cancer female
     Dosage: OTHER QUANTITY : 1T;?FREQUENCY : DAILY;?OTHER ROUTE : PO 21D ON/7D OFF;?
     Route: 050
  2. ANASTROZOLE [Concomitant]
     Active Substance: ANASTROZOLE
  3. ELIQUIS [Concomitant]
     Active Substance: APIXABAN
  4. AZITHROMYCIN [Concomitant]
     Active Substance: AZITHROMYCIN
  5. LETROZOLE [Concomitant]
     Active Substance: LETROZOLE
  6. NAPROXEN [Concomitant]
     Active Substance: NAPROXEN
  7. PANTOPRAZOLE [Concomitant]
     Active Substance: PANTOPRAZOLE
  8. SODIUM BICARBONATE [Concomitant]
  9. TRAMADOL [Concomitant]
  10. FULVESTRANT [Concomitant]
     Active Substance: FULVESTRANT
  11. ONDANSETRON [Concomitant]
  12. GABAPENTIN [Concomitant]

REACTIONS (1)
  - Renal disorder [None]
